FAERS Safety Report 18630656 (Version 1)
Quarter: 2020Q4

REPORT INFORMATION
  Report Type: Spontaneous
  Country: US (occurrence: US)
  Receive Date: 20201218
  Receipt Date: 20201218
  Transmission Date: 20210114
  Serious: No
  Sender: FDA-Public Use
  Company Number: US-ENDO PHARMACEUTICALS INC-2019-111071

PATIENT
  Age: 56 Year
  Sex: Male

DRUGS (1)
  1. XIAFLEX [Suspect]
     Active Substance: COLLAGENASE CLOSTRIDIUM HISTOLYTICUM
     Indication: PEYRONIE^S DISEASE
     Dosage: 0.9 MG, UNKNOWN; SECOND INJECTION
     Route: 026
     Dates: start: 20191213

REACTIONS (8)
  - Penile erythema [Unknown]
  - Penis disorder [Unknown]
  - Penile swelling [Unknown]
  - Injection site pain [Unknown]
  - Penile contusion [Unknown]
  - Testicular swelling [Unknown]
  - Erythema [Unknown]
  - Contusion [Unknown]

NARRATIVE: CASE EVENT DATE: 20191213
